FAERS Safety Report 24345020 (Version 2)
Quarter: 2024Q4

REPORT INFORMATION
  Report Type: Spontaneous
  Country: US (occurrence: US)
  Receive Date: 20240920
  Receipt Date: 20241015
  Transmission Date: 20250115
  Serious: Yes (Hospitalization)
  Sender: PARI RESPIRATORY EQUIPMENT
  Company Number: US-PARI RESPIRATORY EQUIPMENT, INC.-2024PAR00063

PATIENT
  Age: 7 Year
  Sex: Male
  Weight: 28.209 kg

DRUGS (16)
  1. KITABIS PAK [Suspect]
     Active Substance: TOBRAMYCIN
     Indication: Bacterial infection
     Dosage: 300 MG (1 AMPULE) TWICE A DAY FOR 28 DAYS ON AND 28 DAYS OFF
  2. NANOVM 9 TO 18 YEARS [Concomitant]
  3. ACETYLCYSTEINE [Concomitant]
     Active Substance: ACETYLCYSTEINE
  4. ALBUTEROL\IPRATROPIUM [Concomitant]
     Active Substance: ALBUTEROL\IPRATROPIUM
  5. TYLENOL [Concomitant]
     Active Substance: ACETAMINOPHEN
  6. MOTRIN IB [Concomitant]
     Active Substance: IBUPROFEN
  7. CULTURELLE [Concomitant]
     Active Substance: LACTOBACILLUS RHAMNOSUS
  8. VALIUM [Concomitant]
     Active Substance: DIAZEPAM
  9. CUVPOSA [GLYCOPYRRONIUM] [Concomitant]
  10. PULMICORT TURBUHALER [Concomitant]
     Active Substance: BUDESONIDE
  11. FAMOTIDINE [Concomitant]
     Active Substance: FAMOTIDINE
  12. CLARITIN [Concomitant]
     Active Substance: LORATADINE
  13. NEXIUM I.V. [Concomitant]
     Active Substance: ESOMEPRAZOLE SODIUM
  14. KEPPRA [Concomitant]
     Active Substance: LEVETIRACETAM
  15. BACLOFEN [Concomitant]
     Active Substance: BACLOFEN
  16. BUDESONIDE [Concomitant]
     Active Substance: BUDESONIDE

REACTIONS (1)
  - Femur fracture [Recovering/Resolving]

NARRATIVE: CASE EVENT DATE: 20240830
